FAERS Safety Report 6793111-7 (Version None)
Quarter: 2010Q2

REPORT INFORMATION
  Report Type: 
  Country: None (occurrence: None)
  Receive Date: 20100624
  Receipt Date: 20090512
  Transmission Date: 20101027
  Serious: Yes (Death)
  Sender: FDA-Public Use
  Company Number: US-MYLANLABS-2009S1008548

PATIENT
  Age: 68 Year
  Sex: Male

DRUGS (10)
  1. CLOZAPINE [Suspect]
     Indication: SCHIZOPHRENIA
     Route: 048
     Dates: end: 20090501
  2. CLOZAPINE [Suspect]
     Route: 048
     Dates: end: 20090501
  3. LEVAQUIN [Concomitant]
  4. CITALOPRAM [Concomitant]
  5. CARVEDILOL [Concomitant]
  6. LEVOTHYROXINE [Concomitant]
  7. DILTIAZEM [Concomitant]
  8. ARICEPT [Concomitant]
  9. FAMOTIDINE [Concomitant]
  10. NORCO [Concomitant]

REACTIONS (1)
  - DEATH [None]
